FAERS Safety Report 24542294 (Version 2)
Quarter: 2024Q4

REPORT INFORMATION
  Report Type: Spontaneous
  Country: JP (occurrence: JP)
  Receive Date: 20241023
  Receipt Date: 20241112
  Transmission Date: 20250114
  Serious: Yes (Other)
  Sender: SANOFI AVENTIS
  Company Number: JP-SA-2024SA303325

PATIENT
  Age: 48 Year
  Sex: Male

DRUGS (1)
  1. DUPIXENT [Suspect]
     Active Substance: DUPILUMAB
     Indication: Chronic eosinophilic rhinosinusitis
     Route: 058

REACTIONS (3)
  - Eosinophilic pneumonia [Recovering/Resolving]
  - Cough [Recovering/Resolving]
  - Condition aggravated [Recovering/Resolving]
